FAERS Safety Report 9505702 (Version 1)
Quarter: 2013Q1

REPORT INFORMATION
  Report Type: Spontaneous
  Country: US (occurrence: None)
  Receive Date: 20130220
  Receipt Date: 20130220
  Transmission Date: 20140127
  Serious: No
  Sender: FDA-Public Use
  Company Number: 1000041019

PATIENT
  Age: 54 Year
  Sex: Male

DRUGS (3)
  1. VIIBRYD [Suspect]
     Indication: MAJOR DEPRESSION
     Route: 048
     Dates: start: 20120522, end: 20120614
  2. ALLOPURINOL (ALLOPURINOL) (ALLOPURINOL) [Concomitant]
  3. LISINOPRIL (LISINOPRIL) (LISINOPRIL) [Concomitant]

REACTIONS (6)
  - Psychomotor retardation [None]
  - Slow speech [None]
  - Disturbance in attention [None]
  - Confusional state [None]
  - Headache [None]
  - Restlessness [None]
